FAERS Safety Report 19245366 (Version 1)
Quarter: 2021Q2

REPORT INFORMATION
  Report Type: Report from Study
  Country: DE (occurrence: DE)
  Receive Date: 20210512
  Receipt Date: 20210512
  Transmission Date: 20210717
  Serious: Yes (Other)
  Sender: FDA-Public Use
  Company Number: DE-BIOGEN-2021BI01009501

PATIENT
  Age: 47 Year
  Sex: Female

DRUGS (1)
  1. TECFIDERA [Suspect]
     Active Substance: DIMETHYL FUMARATE
     Indication: PRODUCT USED FOR UNKNOWN INDICATION
     Route: 048
     Dates: start: 20150101

REACTIONS (3)
  - Trigeminal nerve disorder [Recovered/Resolved with Sequelae]
  - Deafness unilateral [Recovered/Resolved]
  - Hemianaesthesia [Not Recovered/Not Resolved]

NARRATIVE: CASE EVENT DATE: 202104
